FAERS Safety Report 25961736 (Version 1)
Quarter: 2025Q4

REPORT INFORMATION
  Report Type: Other
  Country: EU (occurrence: EU)
  Receive Date: 20251027
  Receipt Date: 20251027
  Transmission Date: 20260117
  Serious: Yes (Hospitalization, Other)
  Sender: MACLEODS
  Company Number: None

PATIENT

DRUGS (11)
  1. LEVOFLOXACIN [Suspect]
     Active Substance: LEVOFLOXACIN
     Indication: Fusobacterium infection
     Dosage: UNK
     Route: 065
  2. LEVOFLOXACIN [Suspect]
     Active Substance: LEVOFLOXACIN
     Indication: Pneumonia
  3. PIPERACILLIN SODIUM\TAZOBACTAM SODIUM [Suspect]
     Active Substance: PIPERACILLIN SODIUM\TAZOBACTAM SODIUM
     Indication: Fusobacterium infection
     Dosage: UNK
     Route: 065
  4. PIPERACILLIN SODIUM\TAZOBACTAM SODIUM [Suspect]
     Active Substance: PIPERACILLIN SODIUM\TAZOBACTAM SODIUM
     Indication: Pneumonia
  5. CIPROFLOXACIN [Suspect]
     Active Substance: CIPROFLOXACIN
     Indication: Fusobacterium infection
     Dosage: UNK
     Route: 065
  6. CIPROFLOXACIN [Suspect]
     Active Substance: CIPROFLOXACIN
     Indication: Pneumonia
  7. METRONIDAZOLE [Suspect]
     Active Substance: METRONIDAZOLE
     Indication: Bacterial infection
     Dosage: UNK
     Route: 048
  8. CEFOTAXIME [Suspect]
     Active Substance: CEFOTAXIME SODIUM
     Indication: Bacterial infection
     Dosage: CEFOTAXIME SODIUM SALT
     Route: 065
  9. ALBENDAZOLE [Suspect]
     Active Substance: ALBENDAZOLE
     Indication: Product used for unknown indication
     Dosage: UNK
     Route: 065
  10. TIGECYCLINE [Concomitant]
     Active Substance: TIGECYCLINE
     Indication: Bacterial infection
     Dosage: UNK
     Route: 065
  11. RIFAMPIN [Concomitant]
     Active Substance: RIFAMPIN
     Indication: Bacterial infection
     Dosage: UNK
     Route: 048

REACTIONS (3)
  - Pneumonia [Recovering/Resolving]
  - Anaemia [Unknown]
  - Drug ineffective [Recovering/Resolving]
